FAERS Safety Report 5536262-7 (Version None)
Quarter: 2007Q4

REPORT INFORMATION
  Report Type: 
  Country: None (occurrence: None)
  Receive Date: 20071206
  Receipt Date: 20071204
  Transmission Date: 20080405
  Serious: Yes (Hospitalization)
  Sender: FDA-Public Use
  Company Number: US-BOEHRINGER INGELHEIM PHARMACEUTICALS, INC.-2007-BP-24150BP

PATIENT
  Sex: Female

DRUGS (3)
  1. COMBIVENT [Suspect]
     Indication: BRONCHITIS
     Route: 055
     Dates: start: 20060701
  2. ANTIBIOTIC [Suspect]
  3. ZITHROMAX [Concomitant]
     Indication: BRONCHITIS
     Dates: start: 20070705, end: 20070706

REACTIONS (2)
  - DRUG HYPERSENSITIVITY [None]
  - SINUSITIS [None]
